FAERS Safety Report 7727048-3 (Version None)
Quarter: 2011Q3

REPORT INFORMATION
  Report Type: 
  Country: None (occurrence: None)
  Receive Date: 20110902
  Receipt Date: 20110826
  Transmission Date: 20111222
  Serious: Yes (Hospitalization)
  Sender: FDA-Public Use
  Company Number: AU-BRISTOL-MYERS SQUIBB COMPANY-15066251

PATIENT
  Age: 87 Year
  Sex: Female
  Weight: 49 kg

DRUGS (7)
  1. MIRTAZAPINE [Concomitant]
     Indication: DEPRESSION
  2. FLUOROURACIL [Suspect]
     Indication: COLORECTAL CANCER
     Dosage: REC INF: 23MAR2010; 4TH INF;150 MG/M2 BOLUS,1015MG/M2 48HR INF
     Route: 042
     Dates: start: 20100128, end: 20100323
  3. LEUCOVORIN CALCIUM [Suspect]
     Indication: COLORECTAL CANCER
     Dosage: REC INF: 23MAR2010;4TH INF
     Route: 042
     Dates: start: 20100128, end: 20100323
  4. BETAMETHASONE [Concomitant]
     Indication: RASH
  5. GASTRO-STOP [Concomitant]
  6. IRINOTECAN HCL [Suspect]
     Indication: COLORECTAL CANCER
     Dosage: REC INF: 23MAR2010; 4TH INF
     Route: 042
     Dates: start: 20100128, end: 20100323
  7. CETUXIMAB [Suspect]
     Indication: COLORECTAL CANCER
     Dosage: REC INF: 23MAR2010; 4TH INF
     Route: 042
     Dates: start: 20100128, end: 20100323

REACTIONS (1)
  - DEEP VEIN THROMBOSIS [None]
